FAERS Safety Report 17591911 (Version 1)
Quarter: 2020Q1

REPORT INFORMATION
  Report Type: Spontaneous
  Country: FR (occurrence: FR)
  Receive Date: 20200327
  Receipt Date: 20200327
  Transmission Date: 20200409
  Serious: Yes (Hospitalization, Other)
  Sender: FDA-Public Use
  Company Number: FR-JAZZ-2020-FR-004117

PATIENT

DRUGS (2)
  1. KIDROLASE [Suspect]
     Active Substance: ASPARAGINASE
     Indication: ANGIOCENTRIC LYMPHOMA
     Dosage: UNKNOWN DOSE
     Route: 042
     Dates: start: 20200121, end: 20200211
  2. ERWINASE [Suspect]
     Active Substance: ASPARAGINASE ERWINIA CHRYSANTHEMI
     Indication: ANGIOCENTRIC LYMPHOMA
     Dosage: 1000 U
     Route: 061
     Dates: start: 20200211, end: 20200307

REACTIONS (4)
  - Tongue oedema [Recovered/Resolved]
  - Pruritus [Recovered/Resolved]
  - Tremor [Recovered/Resolved]
  - Pyrexia [Recovered/Resolved]

NARRATIVE: CASE EVENT DATE: 20200128
